FAERS Safety Report 7552705-1 (Version None)
Quarter: 2011Q2

REPORT INFORMATION
  Report Type: 
  Country: None (occurrence: None)
  Receive Date: 20110616
  Receipt Date: 20110404
  Transmission Date: 20111010
  Serious: No
  Sender: FDA-Public Use
  Company Number: PR-ABBOTT-11P-131-0703911-00

PATIENT
  Sex: Male

DRUGS (3)
  1. VASOTEC [Concomitant]
     Indication: HYPERTENSION
     Route: 048
  2. LOVAZA [Concomitant]
     Indication: DYSLIPIDAEMIA
  3. TRILIPIX [Suspect]
     Indication: DYSLIPIDAEMIA
     Dosage: ONE DOSE
     Route: 048

REACTIONS (2)
  - FLUSHING [None]
  - HYPOAESTHESIA ORAL [None]
